FAERS Safety Report 21156687 (Version 1)
Quarter: 2022Q3

REPORT INFORMATION
  Report Type: Spontaneous
  Country: US (occurrence: US)
  Receive Date: 20220801
  Receipt Date: 20220801
  Transmission Date: 20221026
  Serious: No
  Sender: FDA-Public Use
  Company Number: US-PADAGIS-2022PAD00221

PATIENT

DRUGS (2)
  1. CYCLOSPORINE [Suspect]
     Active Substance: CYCLOSPORINE
     Indication: Uveitis
     Dosage: UNK
     Route: 065
  2. MYCOPHENOLATE MOFETIL [Suspect]
     Active Substance: MYCOPHENOLATE MOFETIL
     Indication: Uveitis
     Dosage: UNK
     Route: 065

REACTIONS (4)
  - Cognitive disorder [Unknown]
  - Depression [Unknown]
  - Decreased appetite [Unknown]
  - Product use in unapproved indication [Unknown]
